FAERS Safety Report 22303256 (Version 6)
Quarter: 2024Q1

REPORT INFORMATION
  Report Type: Spontaneous
  Country: US (occurrence: US)
  Receive Date: 20230510
  Receipt Date: 20240129
  Transmission Date: 20240409
  Serious: No
  Sender: FDA-Public Use
  Company Number: US-BRISTOL-MYERS SQUIBB COMPANY-2023-065656

PATIENT
  Age: 59 Year
  Sex: Female

DRUGS (3)
  1. SPRYCEL [Suspect]
     Active Substance: DASATINIB
     Indication: Chronic myeloid leukaemia
     Route: 048
     Dates: start: 202212
  2. SPRYCEL [Suspect]
     Active Substance: DASATINIB
     Route: 048
     Dates: start: 202112
  3. SPRYCEL [Suspect]
     Active Substance: DASATINIB
     Dosage: DOSE TO 20 MG EVERY OTHER DAY
     Route: 048

REACTIONS (9)
  - Anxiety [Not Recovered/Not Resolved]
  - Skin disorder [Unknown]
  - Depression [Not Recovered/Not Resolved]
  - Headache [Unknown]
  - Arthralgia [Recovering/Resolving]
  - Fatigue [Unknown]
  - Alopecia [Unknown]
  - Constipation [Unknown]
  - Off label use [Unknown]
